FAERS Safety Report 8545720-2 (Version None)
Quarter: 2012Q3

REPORT INFORMATION
  Report Type: 
  Country: None (occurrence: None)
  Receive Date: 20120727
  Receipt Date: 20120725
  Transmission Date: 20120928
  Serious: Yes (Hospitalization)
  Sender: FDA-Public Use
  Company Number: US-ROCHE-1054436

PATIENT
  Sex: Male

DRUGS (1)
  1. CELLCEPT [Suspect]
     Indication: PRODUCT USED FOR UNKNOWN INDICATION
     Route: 048
     Dates: start: 20090708

REACTIONS (6)
  - SELF INJURIOUS BEHAVIOUR [None]
  - FALL [None]
  - SOMNAMBULISM [None]
  - AMNESIA [None]
  - LOSS OF CONSCIOUSNESS [None]
  - SLEEP DISORDER [None]
